APPROVED DRUG PRODUCT: THIORIDAZINE HYDROCHLORIDE
Active Ingredient: THIORIDAZINE HYDROCHLORIDE
Strength: 30MG/ML
Dosage Form/Route: CONCENTRATE;ORAL
Application: A040125 | Product #001
Applicant: EPIC PHARMA LLC
Approved: Aug 16, 1996 | RLD: No | RS: No | Type: DISCN